FAERS Safety Report 10473770 (Version 1)
Quarter: 2014Q3

REPORT INFORMATION
  Report Type: Spontaneous
  Country: DE (occurrence: DE)
  Receive Date: 20140924
  Receipt Date: 20140924
  Transmission Date: 20150326
  Serious: Yes (Death, Congenital Anomaly)
  Sender: FDA-Public Use
  Company Number: GXKR2014DE003594

PATIENT

DRUGS (2)
  1. LEVETIRACETAM. [Suspect]
     Active Substance: LEVETIRACETAM
     Indication: EPILEPSY
     Dosage: FOETAL DRUG EXPOSURE VIA FATHER: (2000 [MG/D] (FATHER)/ PROBABLY FURTHER INTAKE
     Route: 064
     Dates: start: 20130716, end: 20131014
  2. MISOPROSTOL. [Concomitant]
     Active Substance: MISOPROSTOL
     Indication: LABOUR INDUCTION
     Route: 064
     Dates: start: 20140228, end: 20140228

REACTIONS (1)
  - Congenital hydrocephalus [Fatal]
